FAERS Safety Report 11502183 (Version 1)
Quarter: 2015Q3

REPORT INFORMATION
  Report Type: Report from Study
  Country: CO (occurrence: CO)
  Receive Date: 20150914
  Receipt Date: 20150914
  Transmission Date: 20151125
  Serious: Yes (Other)
  Sender: FDA-Public Use
  Company Number: CO-ABBVIE-15K-036-1463030-00

PATIENT
  Age: 65 Year
  Sex: Female
  Weight: 76 kg

DRUGS (1)
  1. HUMIRA [Suspect]
     Active Substance: ADALIMUMAB
     Indication: PSORIASIS
     Route: 058
     Dates: start: 20130926, end: 20150816

REACTIONS (3)
  - Toothache [Recovering/Resolving]
  - Dental caries [Recovering/Resolving]
  - Pulpitis dental [Recovering/Resolving]

NARRATIVE: CASE EVENT DATE: 20150819
